FAERS Safety Report 6018318-8 (Version None)
Quarter: 2008Q4

REPORT INFORMATION
  Report Type: 
  Country: None (occurrence: None)
  Receive Date: 20081223
  Receipt Date: 20081211
  Transmission Date: 20090506
  Serious: Yes (Hospitalization)
  Sender: FDA-Public Use
  Company Number: FR-PFIZER INC-2008156551

PATIENT

DRUGS (9)
  1. TRIFLUCAN [Suspect]
     Indication: FUNGAL INFECTION
     Route: 048
     Dates: start: 20080807, end: 20080816
  2. RIFAMPICIN [Suspect]
     Route: 042
     Dates: start: 20080629, end: 20080816
  3. OXACILLIN [Suspect]
     Dosage: 2 G, EVERY 4 HRS
     Route: 042
     Dates: start: 20080627, end: 20080813
  4. VENLAFAXINE HYDROCHLORIDE [Concomitant]
     Route: 048
     Dates: start: 20080727, end: 20080817
  5. CEFTAZIDIME PENTAHYDRATE [Concomitant]
     Route: 042
     Dates: start: 20080726, end: 20080805
  6. CIPROFLOXACIN [Concomitant]
     Dates: start: 20080726, end: 20080808
  7. GENTAMICIN [Concomitant]
     Dosage: UNK
     Dates: start: 20080701
  8. NICARDIPINE HYDROCHLORIDE [Concomitant]
     Dosage: UNK
     Dates: start: 20080101
  9. FUROSEMIDE [Concomitant]

REACTIONS (2)
  - DERMATITIS EXFOLIATIVE [None]
  - RASH PAPULAR [None]
